FAERS Safety Report 5340119-4 (Version None)
Quarter: 2007Q2

REPORT INFORMATION
  Report Type: 
  Country: None (occurrence: None)
  Receive Date: 20070525
  Receipt Date: 20070525
  Transmission Date: 20071010
  Serious: Yes (Hospitalization)
  Sender: FDA-Public Use
  Company Number: None

PATIENT
  Age: 88 Year
  Sex: Female

DRUGS (11)
  1. DIGITEK [Suspect]
     Indication: ATRIAL FIBRILLATION
     Dosage: 0.125MG DAILY PO
     Route: 048
  2. METOPROLOL SUCCINATE [Suspect]
     Indication: HYPERTENSION
     Dosage: 50 MG BID PO
     Route: 048
  3. SYNTHROID [Concomitant]
  4. CELEBREX [Concomitant]
  5. DIGITEK [Concomitant]
  6. COUMADIN [Concomitant]
  7. ALLOPURINOL [Concomitant]
  8. METOPROLOL SUCCINATE [Concomitant]
  9. SIMETHICONE [Concomitant]
  10. OMEPRAZOLE [Concomitant]
  11. LASIX [Concomitant]

REACTIONS (5)
  - BRADYCARDIA [None]
  - HYPERKALAEMIA [None]
  - ORAL INTAKE REDUCED [None]
  - RENAL FAILURE ACUTE [None]
  - THERAPEUTIC AGENT TOXICITY [None]
